FAERS Safety Report 25268579 (Version 1)
Quarter: 2025Q2

REPORT INFORMATION
  Report Type: Spontaneous
  Country: US (occurrence: None)
  Receive Date: 20250502
  Receipt Date: 20250502
  Transmission Date: 20250717
  Serious: Yes (unspecified)
  Sender: FDA-CTU
  Company Number: None

PATIENT
  Age: 37 Year
  Sex: Male
  Weight: 74.25 kg

DRUGS (2)
  1. SUBOXONE [Suspect]
     Active Substance: BUPRENORPHINE HYDROCHLORIDE\NALOXONE HYDROCHLORIDE
     Indication: Drug dependence
     Dosage: 2 TABLET(S)  DAILY ORAL
     Route: 048
     Dates: start: 20180601, end: 20250303
  2. BUPRENORPHINE [Suspect]
     Active Substance: BUPRENORPHINE

REACTIONS (5)
  - Tooth injury [None]
  - Device failure [None]
  - Dental caries [None]
  - Tooth injury [None]
  - Pain [None]

NARRATIVE: CASE EVENT DATE: 20230606
